FAERS Safety Report 6461939-9 (Version None)
Quarter: 2009Q4

REPORT INFORMATION
  Report Type: 
  Country: None (occurrence: None)
  Receive Date: 20091024
  Receipt Date: 20091109
  Transmission Date: 20100525
  Serious: Yes (Death, Hospitalization)
  Sender: FDA-Public Use
  Company Number: 2009AC000042

PATIENT
  Age: 45 Year
  Sex: Male

DRUGS (35)
  1. DIGOXIN [Suspect]
     Dosage: 0.25 MG; QD; PO
     Route: 048
     Dates: start: 19970901
  2. HYDRALAZINE HCL [Concomitant]
  3. METOPROLOL [Concomitant]
  4. LISINOPRIL [Concomitant]
  5. POTASSIUM CHLORIDE [Concomitant]
  6. METFORMIN [Concomitant]
  7. FUROSEMIDE [Concomitant]
  8. ACIPHEX [Concomitant]
  9. CYPROHEPTAD [Concomitant]
  10. LORTAB [Concomitant]
  11. ASPIRIN [Concomitant]
  12. CLONIDINE [Concomitant]
  13. PLAVIX [Concomitant]
  14. LASIX [Concomitant]
  15. HYDRALAZINE HCL [Concomitant]
  16. LANTUS [Concomitant]
  17. ZESTRIL [Concomitant]
  18. LORAZEPAM [Concomitant]
  19. METOPROLOL [Concomitant]
  20. PRILOSEC [Concomitant]
  21. KLOR-CON [Concomitant]
  22. DILAUDID [Concomitant]
  23. TRICOR [Concomitant]
  24. NOVOLIN [Concomitant]
  25. OXYCODONE HCL AND ACETAMINOPHEN [Concomitant]
  26. AZITHROMYCIN [Concomitant]
  27. CEPHALEXIN [Concomitant]
  28. LORAZEPAM [Concomitant]
  29. PRILOSEC [Concomitant]
  30. AMOXICILLIN [Concomitant]
  31. LEVAQUIN [Concomitant]
  32. ADVAIR DISKUS 100/50 [Concomitant]
  33. LIDODERM [Concomitant]
  34. CLINDAMYCIN [Concomitant]
  35. LOVAZA [Concomitant]

REACTIONS (13)
  - ANGINA UNSTABLE [None]
  - BRONCHITIS [None]
  - DIABETES MELLITUS [None]
  - DIABETIC RETINOPATHY [None]
  - DYSARTHRIA [None]
  - ECONOMIC PROBLEM [None]
  - HYPERTENSION [None]
  - MULTIPLE INJURIES [None]
  - PAIN IN EXTREMITY [None]
  - PERIPHERAL ISCHAEMIA [None]
  - PNEUMONIA [None]
  - SKIN ULCER [None]
  - SURGERY [None]
